FAERS Safety Report 8796184 (Version 1)
Quarter: 2012Q4

REPORT INFORMATION
  Report Type: 
  Country: JP (occurrence: JP)
  Receive Date: 20120919
  Receipt Date: 20120919
  Transmission Date: 20130627
  Serious: Yes (Other)
  Sender: FDA-Public Use
  Company Number: JP-B.I. PHARMACEUTICALS,INC./RIDGEFIELD-2012-EU-04429GD

PATIENT
  Age: 38 Year
  Sex: Female

DRUGS (3)
  1. PRAMIPEXOLE [Suspect]
     Indication: MAJOR DEPRESSION
     Dosage: 0.25 mg
  2. PRAMIPEXOLE [Suspect]
     Dosage: 1 mg
  3. CLOMIPRAMINE [Concomitant]
     Indication: MAJOR DEPRESSION
     Dosage: 75 mg

REACTIONS (1)
  - Nausea [Unknown]
